FAERS Safety Report 21159081 (Version 1)
Quarter: 2022Q3

REPORT INFORMATION
  Report Type: Spontaneous
  Country: GR (occurrence: GR)
  Receive Date: 20220802
  Receipt Date: 20220802
  Transmission Date: 20221026
  Serious: Yes (Death, Other)
  Sender: FDA-Public Use
  Company Number: GR-CELLTRION INC.-2022GR012097

PATIENT

DRUGS (11)
  1. RITUXIMAB [Suspect]
     Active Substance: RITUXIMAB
     Indication: Waldenstrom^s macroglobulinaemia
  2. RITUXIMAB [Suspect]
     Active Substance: RITUXIMAB
     Indication: Bing-Neel syndrome
  3. DEXAMETHASONE [Suspect]
     Active Substance: DEXAMETHASONE
     Indication: Waldenstrom^s macroglobulinaemia
     Dosage: 4 MG
  4. DEXAMETHASONE [Suspect]
     Active Substance: DEXAMETHASONE
     Indication: Bing-Neel syndrome
  5. CYCLOPHOSPHAMIDE [Suspect]
     Active Substance: CYCLOPHOSPHAMIDE
     Indication: Waldenstrom^s macroglobulinaemia
  6. BENDAMUSTINE [Suspect]
     Active Substance: BENDAMUSTINE
     Indication: Bing-Neel syndrome
     Dosage: R-BENDA (6 CYCLES)
  7. IBRUTINIB [Suspect]
     Active Substance: IBRUTINIB
     Indication: Waldenstrom^s macroglobulinaemia
  8. IBRUTINIB [Suspect]
     Active Substance: IBRUTINIB
     Indication: Bing-Neel syndrome
  9. METHOTREXATE [Suspect]
     Active Substance: METHOTREXATE
     Indication: Bing-Neel syndrome
     Dosage: 12 MG
  10. CYTARABINE [Suspect]
     Active Substance: CYTARABINE
     Indication: Bing-Neel syndrome
  11. VENETOCLAX [Suspect]
     Active Substance: VENETOCLAX
     Indication: Bing-Neel syndrome

REACTIONS (5)
  - Waldenstrom^s macroglobulinaemia [Fatal]
  - Bing-Neel syndrome [Fatal]
  - Disease progression [Fatal]
  - Drug ineffective for unapproved indication [Unknown]
  - Off label use [Unknown]
